FAERS Safety Report 22685299 (Version 3)
Quarter: 2024Q4

REPORT INFORMATION
  Report Type: Report from Study
  Country: US (occurrence: US)
  Receive Date: 20230710
  Receipt Date: 20241112
  Transmission Date: 20250114
  Serious: No
  Sender: NOVARTIS
  Company Number: US-002147023-NVSC2023US152907

PATIENT
  Age: 38 Year
  Sex: Female

DRUGS (1)
  1. KESIMPTA [Suspect]
     Active Substance: OFATUMUMAB
     Indication: Product used for unknown indication
     Dosage: UNK
     Route: 065
     Dates: start: 20230329

REACTIONS (3)
  - Hyperphagia [Not Recovered/Not Resolved]
  - Weight increased [Not Recovered/Not Resolved]
  - Inappropriate schedule of product administration [Unknown]

NARRATIVE: CASE EVENT DATE: 20230707
